FAERS Safety Report 6574494-X (Version None)
Quarter: 2010Q1

REPORT INFORMATION
  Report Type: 
  Country: None (occurrence: None)
  Receive Date: 20100209
  Receipt Date: 20091110
  Transmission Date: 20100710
  Serious: No
  Sender: FDA-Public Use
  Company Number: A0809836A

PATIENT
  Age: 66 Year
  Sex: Male

DRUGS (1)
  1. PAXIL [Suspect]
     Indication: DRUG USE FOR UNKNOWN INDICATION
     Dosage: 10MG PER DAY
     Route: 065

REACTIONS (4)
  - ASTHENIA [None]
  - ERECTILE DYSFUNCTION [None]
  - FATIGUE [None]
  - FEELING ABNORMAL [None]
